FAERS Safety Report 12313613 (Version 2)
Quarter: 2016Q2

REPORT INFORMATION
  Report Type: Spontaneous
  Country: BE (occurrence: BE)
  Receive Date: 20160428
  Receipt Date: 20160509
  Transmission Date: 20160815
  Serious: Yes (Hospitalization, Other)
  Sender: FDA-Public Use
  Company Number: BE-PFIZER INC-2016215493

PATIENT
  Age: 68 Year
  Sex: Male

DRUGS (2)
  1. LYRICA [Suspect]
     Active Substance: PREGABALIN
     Indication: PAIN IN EXTREMITY
     Dosage: 75 MG, DAILY
     Route: 048
  2. LYRICA [Suspect]
     Active Substance: PREGABALIN
     Dosage: 75 MG, 2X/DAY
     Route: 048

REACTIONS (48)
  - Speech disorder [Recovered/Resolved]
  - Somnolence [Unknown]
  - Increased appetite [Unknown]
  - Disturbance in attention [Unknown]
  - Dyskinesia [Unknown]
  - Sensory disturbance [Unknown]
  - Aggression [Unknown]
  - Agitation [Unknown]
  - Urinary incontinence [Recovered/Resolved]
  - Visual impairment [Unknown]
  - Confusional state [Unknown]
  - Lethargy [Unknown]
  - Insomnia [Unknown]
  - Seizure [Unknown]
  - Dizziness [Unknown]
  - Disorientation [Unknown]
  - Amnesia [Unknown]
  - Paraesthesia [Unknown]
  - Fatigue [Unknown]
  - Apathy [Unknown]
  - Suicidal ideation [Unknown]
  - Mental impairment [Unknown]
  - Aphasia [Recovered/Resolved]
  - Clumsiness [Unknown]
  - Mood swings [Unknown]
  - Panic attack [Unknown]
  - Neck pain [Unknown]
  - Paralysis [Recovered/Resolved]
  - Muscle rigidity [Recovered/Resolved]
  - Mutism [Recovered/Resolved]
  - Tremor [Unknown]
  - Hypoaesthesia [Unknown]
  - Nervousness [Unknown]
  - Hallucination [Unknown]
  - Dysgraphia [Unknown]
  - Loss of consciousness [Recovered/Resolved]
  - Pyrexia [Recovered/Resolved]
  - Memory impairment [Unknown]
  - Chills [Unknown]
  - Sedation [Unknown]
  - Balance disorder [Unknown]
  - Anxiety [Unknown]
  - Inflammation [Recovered/Resolved]
  - Depression [Unknown]
  - Abnormal dreams [Unknown]
  - Hyperacusis [Unknown]
  - Pruritus [Unknown]
  - Skin exfoliation [Unknown]

NARRATIVE: CASE EVENT DATE: 20150228
